FAERS Safety Report 5838949-5 (Version None)
Quarter: 2008Q3

REPORT INFORMATION
  Report Type: 
  Country: None (occurrence: None)
  Receive Date: 20080808
  Receipt Date: 20080805
  Transmission Date: 20090109
  Serious: Yes (Death, Other)
  Sender: FDA-Public Use
  Company Number: PHEH2008US03004

PATIENT
  Sex: Female

DRUGS (9)
  1. FEMARA [Suspect]
     Indication: BREAST CANCER
     Dosage: 2.5 MG, QD
     Route: 048
     Dates: start: 20070829, end: 20080108
  2. ZOMETA [Suspect]
     Indication: NEOPLASM MALIGNANT
     Dosage: 4 MG, UNK
     Dates: start: 20060815
  3. FULVESTRANT [Concomitant]
     Indication: NEOPLASM PROGRESSION
     Dosage: UNK
     Dates: start: 20071031, end: 20071218
  4. NAVELBINE [Concomitant]
     Dosage: UNK
     Dates: start: 20080108, end: 20080208
  5. HERCEPTIN [Concomitant]
     Dosage: UNK
     Dates: start: 20080108, end: 20080208
  6. ALBUTEROL [Concomitant]
     Dosage: UNK
     Dates: start: 20080130
  7. ADRIAMYCIN PFS [Concomitant]
     Dosage: UNK
     Dates: start: 20080208
  8. CYCLOPHOSPHAMIDE [Concomitant]
     Dosage: UNK
     Dates: start: 20080208
  9. OXYGEN [Concomitant]
     Dosage: UNK
     Dates: start: 20080213

REACTIONS (39)
  - ALANINE AMINOTRANSFERASE INCREASED [None]
  - ASPARTATE AMINOTRANSFERASE INCREASED [None]
  - ATRIAL FIBRILLATION [None]
  - BLOOD ALBUMIN DECREASED [None]
  - BLOOD ALKALINE PHOSPHATASE INCREASED [None]
  - BLOOD BILIRUBIN INCREASED [None]
  - BLOOD CALCIUM DECREASED [None]
  - BLOOD GLUCOSE INCREASED [None]
  - BLOOD MAGNESIUM INCREASED [None]
  - BLOOD POTASSIUM DECREASED [None]
  - BLOOD SODIUM DECREASED [None]
  - BLOOD UREA INCREASED [None]
  - CANDIDIASIS [None]
  - CARBON DIOXIDE DECREASED [None]
  - CYSTITIS [None]
  - DEPRESSION [None]
  - DYSPNOEA [None]
  - FATIGUE [None]
  - HAEMOGLOBIN INCREASED [None]
  - HEPATIC CIRRHOSIS [None]
  - HEPATIC FUNCTION ABNORMAL [None]
  - HYPERTENSION [None]
  - HYPOXIA [None]
  - INSOMNIA [None]
  - LIVER FUNCTION TEST ABNORMAL [None]
  - LYMPHOCYTE COUNT DECREASED [None]
  - MALAISE [None]
  - MALIGNANT NEOPLASM PROGRESSION [None]
  - MONOCYTE COUNT INCREASED [None]
  - MUSCULAR WEAKNESS [None]
  - NEUTROPHIL COUNT INCREASED [None]
  - OEDEMA PERIPHERAL [None]
  - OSTEOPOROSIS [None]
  - PAIN [None]
  - PROTEIN TOTAL DECREASED [None]
  - RED CELL DISTRIBUTION WIDTH INCREASED [None]
  - SPIDER NAEVUS [None]
  - THROMBOCYTOPENIA [None]
  - WHITE BLOOD CELL COUNT INCREASED [None]
